FAERS Safety Report 22322387 (Version 1)
Quarter: 2023Q2

REPORT INFORMATION
  Report Type: Spontaneous
  Country: US (occurrence: US)
  Receive Date: 20230516
  Receipt Date: 20230516
  Transmission Date: 20230722
  Serious: No
  Sender: FDA-Public Use
  Company Number: US-JAZZ-2022-US-008293

PATIENT
  Sex: Female
  Weight: 70.3 kg

DRUGS (2)
  1. SUNOSI [Suspect]
     Active Substance: SOLRIAMFETOL
     Indication: Hypersomnia
     Dosage: 4.5 GRAM, BID
     Route: 048
  2. ACYCLOVIR [Concomitant]
     Active Substance: ACYCLOVIR
     Dosage: UNK
     Dates: start: 20210328

REACTIONS (6)
  - Obesity [Unknown]
  - Oral herpes [Unknown]
  - Fatigue [Unknown]
  - Depression [Unknown]
  - Off label use [None]
  - Product administration interrupted [None]
